FAERS Safety Report 9606134 (Version 2)
Quarter: 2013Q4

REPORT INFORMATION
  Report Type: Spontaneous
  Country: US (occurrence: US)
  Receive Date: 20131008
  Receipt Date: 20131008
  Transmission Date: 20140711
  Serious: No
  Sender: FDA-Public Use
  Company Number: US-AMGEN-USASP2013038771

PATIENT
  Age: 78 Year
  Sex: Female
  Weight: 93.42 kg

DRUGS (6)
  1. PROLIA [Suspect]
     Indication: OSTEOPOROSIS POSTMENOPAUSAL
     Dosage: 1 DF, UNK
     Route: 058
     Dates: start: 201304, end: 201305
  2. MOBIC [Concomitant]
     Route: 048
  3. CARDIZEM                           /00489701/ [Concomitant]
     Route: 048
  4. SOTALOL [Concomitant]
     Route: 048
  5. CRESTOR [Concomitant]
     Route: 048
  6. ATACAND [Concomitant]
     Route: 048

REACTIONS (1)
  - Arthralgia [Not Recovered/Not Resolved]
